FAERS Safety Report 6460674-0 (Version None)
Quarter: 2009Q4

REPORT INFORMATION
  Report Type: 
  Country: None (occurrence: None)
  Receive Date: 20091125
  Receipt Date: 20091125
  Transmission Date: 20100525
  Serious: No
  Sender: FDA-Public Use
  Company Number: None

PATIENT
  Age: 25 Year
  Sex: Female
  Weight: 43.0917 kg

DRUGS (3)
  1. ORAL MIST-MOUTH SPRAY [Suspect]
     Dosage: 2-3X/DAY 1 DAY
     Dates: start: 20091106, end: 20091107
  2. PROBIOTIC [Concomitant]
  3. ASCORBIC ACID [Concomitant]

REACTIONS (3)
  - AGEUSIA [None]
  - ANOSMIA [None]
  - HYPOAESTHESIA ORAL [None]
